FAERS Safety Report 4757876-8 (Version None)
Quarter: 2005Q3

REPORT INFORMATION
  Report Type: 
  Country: None (occurrence: None)
  Receive Date: 20050830
  Receipt Date: 20050819
  Transmission Date: 20060218
  Serious: Yes (Other)
  Sender: FDA-Public Use
  Company Number: S05-USA-04045-01

PATIENT
  Age: 20 Year
  Sex: Male
  Weight: 136.0791 kg

DRUGS (2)
  1. LEXAPRO [Suspect]
     Indication: DEPRESSION
     Dosage: 10 MG QD PO
     Route: 048
     Dates: start: 20050624
  2. ANTIBIOTICS [Concomitant]

REACTIONS (2)
  - AGGRESSION [None]
  - WEIGHT INCREASED [None]
